FAERS Safety Report 11939736 (Version 2)
Quarter: 2016Q4

REPORT INFORMATION
  Report Type: Spontaneous
  Country: US (occurrence: US)
  Receive Date: 20160122
  Receipt Date: 20161117
  Transmission Date: 20170206
  Serious: Yes (Other)
  Sender: FDA-Public Use
  Company Number: US-BAYER-2016-012957

PATIENT
  Age: 25 Year
  Sex: Female
  Weight: 101.59 kg

DRUGS (4)
  1. XARELTO [Concomitant]
     Active Substance: RIVAROXABAN
     Dosage: 1 DF, QD WITH FOOD
     Route: 048
  2. ARMOUR THYROID [Concomitant]
     Active Substance: THYROID, PORCINE
     Dosage: 1 DF, QD
     Route: 048
  3. SKYLA [Suspect]
     Active Substance: LEVONORGESTREL
     Indication: CONTRACEPTION
     Dosage: 14 MCG/24HR, CONT
     Route: 015
     Dates: start: 20151221, end: 20160118
  4. CALCIUM [Concomitant]
     Active Substance: CALCIUM
     Dosage: 2 DF, QD

REACTIONS (7)
  - Pain [None]
  - Deep vein thrombosis [None]
  - Device expulsion [None]
  - Genital haemorrhage [None]
  - Dysmenorrhoea [None]
  - Abdominal pain lower [None]
  - Embolism venous [None]

NARRATIVE: CASE EVENT DATE: 201601
